FAERS Safety Report 22155035 (Version 1)
Quarter: 2023Q1

REPORT INFORMATION
  Report Type: Report from Study
  Country: NZ (occurrence: NZ)
  Receive Date: 20230330
  Receipt Date: 20230330
  Transmission Date: 20230418
  Serious: Yes (Death)
  Sender: FDA-Public Use
  Company Number: NZ-Merck Healthcare KGaA-9389632

PATIENT
  Age: 82 Year
  Sex: Female
  Weight: 53 kg

DRUGS (2)
  1. CETUXIMAB [Suspect]
     Active Substance: CETUXIMAB
     Indication: Colon cancer
     Dosage: UNK UNK, 2/M (ONCE IN TWO WEEKS)
     Route: 042
     Dates: start: 20221111, end: 20221209
  2. ENCORAFENIB [Concomitant]
     Active Substance: ENCORAFENIB
     Indication: Colon cancer
     Dosage: UNK UNK, DAILY
     Route: 048
     Dates: start: 20221111, end: 20221221

REACTIONS (4)
  - Sudden cardiac death [Fatal]
  - Malignant neoplasm progression [Fatal]
  - Pulmonary embolism [Fatal]
  - Off label use [Unknown]

NARRATIVE: CASE EVENT DATE: 20221221
